FAERS Safety Report 7035477-9 (Version None)
Quarter: 2010Q4

REPORT INFORMATION
  Report Type: 
  Country: None (occurrence: None)
  Receive Date: 20101008
  Receipt Date: 20100929
  Transmission Date: 20110411
  Serious: Yes (Hospitalization)
  Sender: FDA-Public Use
  Company Number: JP-JNJFOC-20100902382

PATIENT
  Age: 58 Year
  Sex: Male

DRUGS (3)
  1. REMICADE [Suspect]
     Indication: CROHN'S DISEASE
     Dosage: 1 DOSE ADMINISTERED
     Route: 042
  2. PREDNISOLONE [Suspect]
     Indication: CROHN'S DISEASE
  3. IMURAN [Concomitant]
     Indication: CROHN'S DISEASE

REACTIONS (1)
  - CYTOMEGALOVIRUS INFECTION [None]
